FAERS Safety Report 17761017 (Version 2)
Quarter: 2020Q2

REPORT INFORMATION
  Report Type: Spontaneous
  Country: US (occurrence: US)
  Receive Date: 20200508
  Receipt Date: 20200513
  Transmission Date: 20200714
  Serious: No
  Sender: FDA-Public Use
  Company Number: US-PFIZER INC-2020185165

PATIENT
  Age: 68 Year
  Sex: Female

DRUGS (1)
  1. VIZIMPRO [Suspect]
     Active Substance: DACOMITINIB
     Dosage: 30 MG,UNK

REACTIONS (1)
  - Neoplasm progression [Unknown]
